FAERS Safety Report 16960312 (Version 1)
Quarter: 2019Q4

REPORT INFORMATION
  Report Type: Spontaneous
  Country: US (occurrence: US)
  Receive Date: 20191025
  Receipt Date: 20191025
  Transmission Date: 20200122
  Serious: No
  Sender: FDA-Public Use
  Company Number: US-PFIZER INC-2019456678

PATIENT
  Age: 42 Year
  Sex: Female
  Weight: 72.57 kg

DRUGS (3)
  1. EFFEXOR XR [Suspect]
     Active Substance: VENLAFAXINE HYDROCHLORIDE
     Indication: DEPRESSION
     Dosage: 150 MG, 2X/DAY (75 MG, 2 IN THE MORNING AND 2 AT NIGHT, FOR 300 MG TOTAL DAILY)
     Dates: start: 2005
  2. EFFEXOR XR [Suspect]
     Active Substance: VENLAFAXINE HYDROCHLORIDE
     Dosage: 75 MG, 2X/DAY
     Dates: start: 2019
  3. EFFEXOR XR [Suspect]
     Active Substance: VENLAFAXINE HYDROCHLORIDE
     Indication: MIGRAINE
     Dosage: 150 MG, 2X/DAY (75 MG, 2 IN THE MORNING AND 2 AT NIGHT, FOR 300 MG TOTAL DAILY)
     Dates: start: 2008

REACTIONS (7)
  - Overdose [Unknown]
  - Malaise [Not Recovered/Not Resolved]
  - Chest pain [Unknown]
  - Maternal exposure during pregnancy [Unknown]
  - Product administration error [Unknown]
  - Nausea [Unknown]
  - Off label use [Unknown]

NARRATIVE: CASE EVENT DATE: 2005
